FAERS Safety Report 19799537 (Version 2)
Quarter: 2022Q2

REPORT INFORMATION
  Report Type: Spontaneous
  Country: US (occurrence: US)
  Receive Date: 20210907
  Receipt Date: 20220406
  Transmission Date: 20220721
  Serious: Yes (Other)
  Sender: FDA-Public Use
  Company Number: US-GLAXOSMITHKLINE-US2021GSK190611

PATIENT
  Sex: Female

DRUGS (14)
  1. RANITIDINE [Suspect]
     Active Substance: RANITIDINE
     Indication: Gastrooesophageal reflux disease
     Dosage: 20 MG, OCCASIONAL
     Route: 065
     Dates: start: 199010, end: 202003
  2. RANITIDINE [Suspect]
     Active Substance: RANITIDINE
     Dosage: 40 MG, OCCASIONAL
     Route: 065
     Dates: start: 199010, end: 202003
  3. ZANTAC [Suspect]
     Active Substance: RANITIDINE HYDROCHLORIDE
     Indication: Gastrooesophageal reflux disease
     Dosage: 20 MG, OCCASIONAL
     Route: 065
     Dates: start: 199010, end: 202003
  4. ZANTAC [Suspect]
     Active Substance: RANITIDINE HYDROCHLORIDE
     Dosage: 40 MG, OCCASIONAL
     Route: 065
     Dates: start: 199010, end: 202003
  5. ZANTAC [Suspect]
     Active Substance: RANITIDINE HYDROCHLORIDE
     Indication: Gastrooesophageal reflux disease
     Dosage: 20 MG, OCCASIONAL
     Route: 065
     Dates: start: 199010, end: 202003
  6. ZANTAC [Suspect]
     Active Substance: RANITIDINE HYDROCHLORIDE
     Dosage: 40 MG, OCCASIONAL
     Route: 065
     Dates: start: 199010, end: 202003
  7. RANITIDINE [Suspect]
     Active Substance: RANITIDINE
     Indication: Gastrooesophageal reflux disease
     Dosage: 20 MG, OCCASIONAL
     Route: 065
     Dates: start: 199010, end: 202003
  8. RANITIDINE [Suspect]
     Active Substance: RANITIDINE
     Dosage: 40 MG, OCCASIONAL
     Route: 065
     Dates: start: 199010, end: 202003
  9. RANITIDINE [Suspect]
     Active Substance: RANITIDINE
     Indication: Gastrooesophageal reflux disease
     Dosage: 20 MG, OCCASIONAL
     Route: 065
     Dates: start: 199010, end: 202003
  10. RANITIDINE [Suspect]
     Active Substance: RANITIDINE
     Dosage: 40 MG, OCCASIONAL
     Route: 065
     Dates: start: 199010, end: 202003
  11. RANITIDINE [Suspect]
     Active Substance: RANITIDINE
     Indication: Gastrooesophageal reflux disease
     Dosage: 20 MG, OCCASIONAL
     Route: 065
     Dates: start: 199010, end: 202003
  12. RANITIDINE [Suspect]
     Active Substance: RANITIDINE
     Dosage: 40 MG, OCCASIONAL
     Route: 065
     Dates: start: 199010, end: 202003
  13. ZANTAC [Suspect]
     Active Substance: RANITIDINE HYDROCHLORIDE
     Indication: Gastrooesophageal reflux disease
     Dosage: 20 MG, OCCASIONAL
     Route: 065
     Dates: start: 199010, end: 202003
  14. ZANTAC [Suspect]
     Active Substance: RANITIDINE HYDROCHLORIDE
     Dosage: 40 MG, OCCASIONAL
     Route: 065
     Dates: start: 199010, end: 202003

REACTIONS (1)
  - Bladder cancer [Unknown]
